FAERS Safety Report 6118704-1 (Version None)
Quarter: 2009Q1

REPORT INFORMATION
  Report Type: 
  Country: None (occurrence: None)
  Receive Date: 20090314
  Receipt Date: 20090227
  Transmission Date: 20090719
  Serious: No
  Sender: FDA-Public Use
  Company Number: US-ABBOTT-09P-163-0559625-00

PATIENT
  Sex: Male
  Weight: 122.58 kg

DRUGS (1)
  1. HUMIRA [Suspect]
     Indication: CROHN'S DISEASE
     Dosage: 160 MG, DAY 1
     Dates: start: 20090206

REACTIONS (5)
  - DIARRHOEA [None]
  - FEELING COLD [None]
  - HOT FLUSH [None]
  - PYREXIA [None]
  - RHINORRHOEA [None]
